FAERS Safety Report 8267974-2 (Version None)
Quarter: 2012Q2

REPORT INFORMATION
  Report Type: 
  Country: None (occurrence: None)
  Receive Date: 20120409
  Receipt Date: 20120326
  Transmission Date: 20120825
  Serious: Yes (Other)
  Sender: FDA-Public Use
  Company Number: AU-MYLANLABS-2012S1006341

PATIENT
  Age: 5 Decade
  Sex: Male

DRUGS (2)
  1. TAMATE [Suspect]
     Indication: EPILEPSY
     Route: 048
     Dates: start: 20111001, end: 20120101
  2. LAMOTRIGINE [Suspect]
     Indication: EPILEPSY
     Route: 048
     Dates: start: 20110701, end: 20120101

REACTIONS (3)
  - CONVULSION [None]
  - DRUG INEFFECTIVE [None]
  - PRODUCT SUBSTITUTION ISSUE [None]
